FAERS Safety Report 5596003-4 (Version None)
Quarter: 2007Q4

REPORT INFORMATION
  Report Type: 
  Country: None (occurrence: None)
  Receive Date: 20071218
  Receipt Date: 20070925
  Transmission Date: 20080405
  Serious: Yes (Other)
  Sender: FDA-Public Use
  Company Number: 2007079762

PATIENT
  Age: 47 Year
  Sex: Female
  Weight: 68 kg

DRUGS (3)
  1. BEXTRA [Suspect]
     Indication: ARTHRALGIA
     Dosage: 10MG AND 20MG (ONCE PER DAY),ORAL
     Route: 048
     Dates: start: 20041215
  2. BEXTRA [Suspect]
     Indication: BACK PAIN
     Dosage: 10MG AND 20MG (ONCE PER DAY),ORAL
     Route: 048
     Dates: start: 20041215
  3. BEXTRA [Suspect]
     Indication: PAIN IN EXTREMITY
     Dosage: 10MG AND 20MG (ONCE PER DAY),ORAL
     Route: 048
     Dates: start: 20041215

REACTIONS (3)
  - ANXIETY [None]
  - CELLULITIS [None]
  - DEPRESSION [None]
